FAERS Safety Report 16667068 (Version 1)
Quarter: 2019Q3

REPORT INFORMATION
  Report Type: Spontaneous
  Country: DE (occurrence: DE)
  Receive Date: 20190805
  Receipt Date: 20190805
  Transmission Date: 20191004
  Serious: Yes (Hospitalization)
  Sender: FDA-Public Use
  Company Number: DE-ACCORD-150334

PATIENT
  Age: 68 Year
  Sex: Female
  Weight: 71 kg

DRUGS (5)
  1. SIMVASTATIN. [Concomitant]
     Active Substance: SIMVASTATIN
     Dosage: 20 MG, 0-0-1, TABLETTEN
     Route: 048
  2. DICLOFENAC [Concomitant]
     Active Substance: DICLOFENAC
     Dosage: 75 MG, 1X/ AM 10.03.17, TABLETTEN
     Route: 048
  3. AMLODIPINE [Suspect]
     Active Substance: AMLODIPINE BESYLATE
     Indication: PRODUCT USED FOR UNKNOWN INDICATION
     Dosage: 5 MG, 0-0-1, TABLETS
     Route: 048
  4. CANDESARTAN. [Concomitant]
     Active Substance: CANDESARTAN
     Dosage: 16,12.5 MG, 1-0-0, TABLETTEN
     Route: 048
  5. ACETYLSALICYLIC ACID [Concomitant]
     Active Substance: ASPIRIN
     Dosage: 100 MG, 1-0-0, TABLETTEN
     Route: 048

REACTIONS (4)
  - Presyncope [Unknown]
  - Hypotension [Unknown]
  - Dizziness [Unknown]
  - Cold sweat [Unknown]
